FAERS Safety Report 12918555 (Version 1)
Quarter: 2016Q4

REPORT INFORMATION
  Report Type: Spontaneous
  Country: GB (occurrence: GB)
  Receive Date: 20161107
  Receipt Date: 20161107
  Transmission Date: 20170207
  Serious: Yes (Death)
  Sender: FDA-Public Use
  Company Number: GB-PFIZER INC-2016513505

PATIENT
  Sex: Male

DRUGS (3)
  1. AXITINIB [Suspect]
     Active Substance: AXITINIB
     Indication: METASTATIC RENAL CELL CARCINOMA
     Dosage: 5 MG, 2X/DAY
  2. AXITINIB [Suspect]
     Active Substance: AXITINIB
     Dosage: 10 MG, 2X/DAY
  3. AXITINIB [Suspect]
     Active Substance: AXITINIB
     Dosage: 7 MG, 2X/DAY

REACTIONS (6)
  - Hypertension [Unknown]
  - Diarrhoea [Unknown]
  - Hypothyroidism [Unknown]
  - Death [Fatal]
  - Neoplasm progression [Unknown]
  - Dysphonia [Unknown]

NARRATIVE: CASE EVENT DATE: 201604
